FAERS Safety Report 4832031-1 (Version None)
Quarter: 2005Q4

REPORT INFORMATION
  Report Type: 
  Country: None (occurrence: None)
  Receive Date: 20051116
  Receipt Date: 20051031
  Transmission Date: 20060501
  Serious: Yes (Hospitalization)
  Sender: FDA-Public Use
  Company Number: DSA_27346_2005

PATIENT
  Age: 72 Year
  Sex: Female

DRUGS (10)
  1. TEMESTA [Suspect]
     Dosage: 1.5 MG Q DAY PO
     Route: 048
     Dates: start: 20050106, end: 20050110
  2. TEMESTA [Suspect]
     Dosage: 2 MG Q DAY PO
     Route: 048
     Dates: start: 20041001, end: 20050105
  3. TEMESTA [Suspect]
     Dosage: 1 MG Q DAY PO
     Route: 048
     Dates: start: 20050111, end: 20050117
  4. TEMESTA [Suspect]
     Dosage: 0.5 MG Q DAY PO
     Route: 048
     Dates: start: 20050118, end: 20050124
  5. TEMESTA [Suspect]
     Dosage: 0.25 MG Q DAY PO
     Route: 048
     Dates: start: 20050125, end: 20050128
  6. DIPIPERON [Suspect]
     Dosage: 30 MG Q DAY PO
     Route: 048
     Dates: start: 20050106
  7. RISPERDAL [Suspect]
     Dosage: 1 MG Q DAY PO
     Route: 048
     Dates: start: 20050106, end: 20050107
  8. RISPERDAL [Suspect]
     Dosage: 2 MG Q DAY PO
     Route: 048
     Dates: start: 20041001, end: 20050105
  9. SPASMO-URGENIN [Concomitant]
  10. ASPIRIN [Concomitant]

REACTIONS (7)
  - BLOOD PRESSURE DECREASED [None]
  - CIRCULATORY COLLAPSE [None]
  - CONTUSION [None]
  - DIZZINESS [None]
  - FALL [None]
  - INTRACRANIAL INJURY [None]
  - SOMNOLENCE [None]
